FAERS Safety Report 17496650 (Version 2)
Quarter: 2020Q1

REPORT INFORMATION
  Report Type: Report from Study
  Country: HU (occurrence: HU)
  Receive Date: 20200304
  Receipt Date: 20200324
  Transmission Date: 20200409
  Serious: Yes (Other)
  Sender: FDA-Public Use
  Company Number: NVSC2020HU037670

PATIENT
  Age: 45 Year
  Sex: Female
  Weight: 105 kg

DRUGS (4)
  1. XARELTO [Concomitant]
     Active Substance: RIVAROXABAN
     Indication: ANTICOAGULANT THERAPY
     Dosage: UNK (1X1)
     Route: 065
     Dates: start: 201904
  2. ZOLEDRONIC ACID [Suspect]
     Active Substance: ZOLEDRONIC ACID
     Indication: BONE CANCER
     Dosage: UNK, QMO (4 MG/5ML)
     Route: 042
     Dates: start: 20190909
  3. VOTRIENT [Suspect]
     Active Substance: PAZOPANIB HYDROCHLORIDE
     Indication: RENAL NEOPLASM
     Dosage: UNK
     Route: 065
     Dates: start: 201911
  4. PANTOPRAZOLE [Suspect]
     Active Substance: PANTOPRAZOLE
     Indication: ANTACID THERAPY
     Dosage: 1X1
     Route: 065

REACTIONS (7)
  - Menstruation irregular [Unknown]
  - Renal impairment [Unknown]
  - Nausea [Unknown]
  - Diarrhoea [Unknown]
  - Haemorrhage [Unknown]
  - Haematuria [Unknown]
  - Blood pressure increased [Recovering/Resolving]

NARRATIVE: CASE EVENT DATE: 20200221
